FAERS Safety Report 17781077 (Version 3)
Quarter: 2020Q2

REPORT INFORMATION
  Report Type: Spontaneous
  Country: CN (occurrence: CN)
  Receive Date: 20200513
  Receipt Date: 20200522
  Transmission Date: 20200714
  Serious: Yes (Death)
  Sender: FDA-Public Use
  Company Number: CN-ASTRAZENECA-2020SE61576

PATIENT
  Age: 799 Month
  Sex: Female

DRUGS (7)
  1. OSIMERTINIB. [Suspect]
     Active Substance: OSIMERTINIB
     Indication: METASTASIS
     Route: 048
     Dates: start: 20181123, end: 201907
  2. OSIMERTINIB. [Suspect]
     Active Substance: OSIMERTINIB
     Indication: METASTASIS
     Route: 048
     Dates: start: 201907
  3. OSIMERTINIB. [Suspect]
     Active Substance: OSIMERTINIB
     Indication: NON-SMALL CELL LUNG CANCER
     Route: 048
     Dates: start: 20181123, end: 201907
  4. BEVACIZUMAB. [Suspect]
     Active Substance: BEVACIZUMAB
     Indication: NON-SMALL CELL LUNG CANCER
     Route: 065
  5. LEVOSIMENDAN [Concomitant]
     Active Substance: LEVOSIMENDAN
     Route: 065
  6. OSIMERTINIB. [Suspect]
     Active Substance: OSIMERTINIB
     Indication: NON-SMALL CELL LUNG CANCER
     Route: 048
     Dates: start: 201907
  7. BEVACIZUMAB. [Suspect]
     Active Substance: BEVACIZUMAB
     Indication: METASTASIS
     Route: 065

REACTIONS (2)
  - Cardiac failure [Fatal]
  - Metastases to meninges [Fatal]

NARRATIVE: CASE EVENT DATE: 201906
